FAERS Safety Report 5956746-7 (Version None)
Quarter: 2008Q4

REPORT INFORMATION
  Report Type: 
  Country: None (occurrence: None)
  Receive Date: 20081031
  Receipt Date: 20080811
  Transmission Date: 20090506
  Serious: No
  Sender: FDA-Public Use
  Company Number: 2008PV036419

PATIENT
  Age: 49 Year
  Sex: Male

DRUGS (5)
  1. SYMLIN [Suspect]
     Dosage: SEE IMAGE.
     Dates: start: 20080801, end: 20080801
  2. SYMLIN [Suspect]
     Dosage: SEE IMAGE.
     Dates: start: 20080806, end: 20080801
  3. SYMLIN [Suspect]
     Dosage: SEE IMAGE.
     Dates: start: 20080801
  4. NOVOLOG [Concomitant]
  5. LANTUS [Concomitant]

REACTIONS (1)
  - NAUSEA [None]
